FAERS Safety Report 6074116-0 (Version None)
Quarter: 2009Q1

REPORT INFORMATION
  Report Type: 
  Country: None (occurrence: None)
  Receive Date: 20090211
  Receipt Date: 20090204
  Transmission Date: 20090719
  Serious: Yes (Life-Threatening, Hospitalization)
  Sender: FDA-Public Use
  Company Number: B0557484A

PATIENT
  Age: 66 Year
  Sex: Female

DRUGS (4)
  1. TRIZIVIR [Suspect]
     Indication: HIV INFECTION
     Dosage: 1UNIT TWICE PER DAY
     Route: 048
     Dates: start: 20010327
  2. LEXOMIL [Concomitant]
     Dosage: .5UNIT PER DAY
     Route: 048
     Dates: start: 20060418
  3. HEXAQUINE [Concomitant]
     Dosage: 1UNIT THREE TIMES PER DAY
     Route: 048
     Dates: start: 20070925
  4. CACIT VITAMINE D3 [Concomitant]
     Dosage: 1UNIT PER DAY
     Route: 048
     Dates: start: 20070925

REACTIONS (10)
  - ACUTE CORONARY SYNDROME [None]
  - AORTIC STENOSIS [None]
  - AORTIC VALVE INCOMPETENCE [None]
  - BUNDLE BRANCH BLOCK RIGHT [None]
  - CARDIOMEGALY [None]
  - CAROTID ARTERIOSCLEROSIS [None]
  - CORONARY ARTERY STENOSIS [None]
  - ELECTROCARDIOGRAM ST SEGMENT ABNORMAL [None]
  - LEFT VENTRICULAR DYSFUNCTION [None]
  - LUNG INFILTRATION [None]
